FAERS Safety Report 7271029-3 (Version None)
Quarter: 2011Q1

REPORT INFORMATION
  Report Type: 
  Country: None (occurrence: None)
  Receive Date: 20110202
  Receipt Date: 20110128
  Transmission Date: 20110831
  Serious: Yes (Hospitalization, Other)
  Sender: FDA-Public Use
  Company Number: US-PFIZER INC-2010157149

PATIENT
  Sex: Male

DRUGS (1)
  1. CHANTIX [Suspect]
     Indication: SMOKING CESSATION THERAPY
     Dosage: STARTER PACK
     Dates: start: 20070801, end: 20071201

REACTIONS (17)
  - INTENTIONAL OVERDOSE [None]
  - CONVULSION [None]
  - GENERALISED ANXIETY DISORDER [None]
  - CONFUSIONAL STATE [None]
  - DELUSION [None]
  - HALLUCINATION [None]
  - MENTAL DISORDER [None]
  - EMOTIONAL DISTRESS [None]
  - BIPOLAR DISORDER [None]
  - AGGRESSION [None]
  - PHYSICAL ASSAULT [None]
  - IMPULSIVE BEHAVIOUR [None]
  - HYPOMANIA [None]
  - SUICIDE ATTEMPT [None]
  - MAJOR DEPRESSION [None]
  - COGNITIVE DISORDER [None]
  - MEMORY IMPAIRMENT [None]
